FAERS Safety Report 8230795-0 (Version None)
Quarter: 2012Q1

REPORT INFORMATION
  Report Type: 
  Country: None (occurrence: None)
  Receive Date: 20120323
  Receipt Date: 20120321
  Transmission Date: 20120608
  Serious: No
  Sender: FDA-Public Use
  Company Number: US-PFIZER INC-2011315470

PATIENT
  Sex: Female
  Weight: 57.143 kg

DRUGS (3)
  1. LIPITOR [Suspect]
     Indication: BLOOD CHOLESTEROL INCREASED
     Dosage: UNK, DAILY
     Route: 048
     Dates: end: 20110101
  2. HYZAAR [Concomitant]
     Indication: HYPERTENSION
     Dosage: UNK
  3. LIPITOR [Suspect]
     Dosage: UNK, DAILY
     Route: 048
     Dates: start: 20111216, end: 20111220

REACTIONS (3)
  - PAIN [None]
  - PAIN IN EXTREMITY [None]
  - MUSCULOSKELETAL STIFFNESS [None]
